FAERS Safety Report 7206728-2 (Version None)
Quarter: 2011Q1

REPORT INFORMATION
  Report Type: 
  Country: None (occurrence: None)
  Receive Date: 20110103
  Receipt Date: 20101220
  Transmission Date: 20110831
  Serious: Yes (Hospitalization, Disabling)
  Sender: FDA-Public Use
  Company Number: US-SANOFI-AVENTIS-F01200900540

PATIENT
  Age: 77 Year
  Sex: Female

DRUGS (13)
  1. FLUOROURACIL [Suspect]
  2. BEVACIZUMAB [Suspect]
     Dates: start: 20090925, end: 20090925
  3. FUROSEMIDE [Concomitant]
  4. BEVACIZUMAB [Suspect]
     Dates: start: 20090414, end: 20090414
  5. LEVAQUIN [Concomitant]
  6. CADUET COMBINATION [Concomitant]
  7. PLACEBO [Suspect]
     Route: 048
     Dates: start: 20080925, end: 20090423
  8. FOLINIC ACID [Suspect]
     Route: 065
  9. METFORMIN HCL [Concomitant]
  10. GABAPENTIN [Concomitant]
  11. OXALIPLATIN [Suspect]
  12. AVANDIA [Concomitant]
  13. LISINOPRIL [Concomitant]

REACTIONS (3)
  - DEHYDRATION [None]
  - NEUTROPENIA [None]
  - DIABETIC KETOACIDOSIS [None]
